FAERS Safety Report 4659377-4 (Version None)
Quarter: 2005Q2

REPORT INFORMATION
  Report Type: 
  Country: None (occurrence: None)
  Receive Date: 20050510
  Receipt Date: 20050427
  Transmission Date: 20051028
  Serious: Yes (Other)
  Sender: FDA-Public Use
  Company Number: 2005-04-1289

PATIENT
  Age: 41 Year
  Sex: Male

DRUGS (7)
  1. CLARITIN [Suspect]
     Indication: RHINITIS ALLERGIC
     Dosage: SEE IMAGE
     Route: 048
     Dates: start: 20041225, end: 20050330
  2. CLARITIN [Suspect]
     Indication: RHINITIS ALLERGIC
     Dosage: SEE IMAGE
     Route: 048
     Dates: start: 20041225, end: 20050408
  3. CLARITIN [Suspect]
     Indication: RHINITIS ALLERGIC
     Dosage: SEE IMAGE
     Route: 048
     Dates: start: 20050331, end: 20050408
  4. URINORM TABLETS [Concomitant]
  5. GRANDAXIN [Concomitant]
  6. MERISLON TABLETS [Concomitant]
  7. KENACORT-A  INJECTABLE [Concomitant]

REACTIONS (9)
  - ALANINE AMINOTRANSFERASE INCREASED [None]
  - CONDITION AGGRAVATED [None]
  - GAMMA-GLUTAMYLTRANSFERASE INCREASED [None]
  - GASTROENTERITIS [None]
  - LYMPHOCYTE COUNT INCREASED [None]
  - NEUTROPHIL COUNT DECREASED [None]
  - PLATELET COUNT ABNORMAL [None]
  - RHINITIS ALLERGIC [None]
  - WHITE BLOOD CELL COUNT DECREASED [None]
